FAERS Safety Report 4556660-8 (Version None)
Quarter: 2005Q1

REPORT INFORMATION
  Report Type: 
  Country: None (occurrence: None)
  Receive Date: 20050118
  Receipt Date: 20050106
  Transmission Date: 20050727
  Serious: Yes (Life-Threatening, Hospitalization, Congenital Anomaly)
  Sender: FDA-Public Use
  Company Number: HQWYE432929SEP04

PATIENT
  Sex: Female
  Weight: 2.5 kg

DRUGS (6)
  1. EFFEXOR [Suspect]
     Indication: DEPRESSION
     Dosage: 150 MG 1X PER 1 DAY, TRANSPLACENTAL
     Route: 064
     Dates: start: 20020101
  2. MAGNESIUM SULFATE [Suspect]
  3. PREVACID [Concomitant]
  4. ZYRTEK (CETIRIZINE HYDROCHLORIDE) [Concomitant]
  5. BENADRYL [Concomitant]
  6. LABETALOL HCL [Concomitant]

REACTIONS (8)
  - BRADYCARDIA NEONATAL [None]
  - CHONDRODYSTROPHY [None]
  - CONGENITAL MYOPATHY [None]
  - DRUG EXPOSURE DURING PREGNANCY [None]
  - HYPOCHONDROPLASIA [None]
  - HYPOTONIA NEONATAL [None]
  - MUSCULAR DYSTROPHY [None]
  - NEONATAL APNOEIC ATTACK [None]
